FAERS Safety Report 21651203 (Version 1)
Quarter: 2022Q4

REPORT INFORMATION
  Report Type: Spontaneous
  Country: US (occurrence: US)
  Receive Date: 20221128
  Receipt Date: 20221128
  Transmission Date: 20230112
  Serious: No
  Sender: FDA-Public Use
  Company Number: US-PFIZER INC-PV202200111950

PATIENT
  Age: 42 Year
  Sex: Female

DRUGS (4)
  1. EUCRISA [Suspect]
     Active Substance: CRISABOROLE
     Indication: Dermatitis atopic
     Dosage: APPLY ONCE TO TWICE DAILY TO AFFECTED AREA OF FACE WHEN BREAKING FROM TOPICAL STEROID
     Route: 061
  2. EUCRISA [Suspect]
     Active Substance: CRISABOROLE
     Indication: Rash erythematous
  3. EUCRISA [Suspect]
     Active Substance: CRISABOROLE
     Indication: Xerosis
  4. EUCRISA [Suspect]
     Active Substance: CRISABOROLE
     Indication: Dermatitis contact

REACTIONS (2)
  - Drug ineffective [Unknown]
  - Off label use [Unknown]
